FAERS Safety Report 9228732 (Version 2)
Quarter: 2013Q2

REPORT INFORMATION
  Report Type: Report from Study
  Country: US (occurrence: US)
  Receive Date: 20130412
  Receipt Date: 20130508
  Transmission Date: 20140414
  Serious: Yes (Hospitalization)
  Sender: FDA-Public Use
  Company Number: US-PFIZER INC-2013104421

PATIENT
  Age: 60 Year
  Sex: Male
  Weight: 75 kg

DRUGS (4)
  1. BLINDED CELECOXIB [Suspect]
     Indication: NON-SMALL CELL LUNG CANCER
     Dosage: 400 MG, BID DAYS 1 TO 21
     Route: 048
     Dates: start: 20121227, end: 20130304
  2. BLINDED PLACEBO [Suspect]
     Indication: NON-SMALL CELL LUNG CANCER
     Dosage: 400 MG, BID DAYS 1 TO 21
     Route: 048
     Dates: start: 20121227, end: 20130304
  3. GEMCITABINE HYDROCHLORIDE [Suspect]
     Indication: NON-SMALL CELL LUNG CANCER
     Dosage: 1000 MG/M2, DAYS 1 AND 8 EVERY 21 DAYS
     Route: 042
     Dates: start: 20121227, end: 20130226
  4. CARBOPLATIN [Suspect]
     Indication: NON-SMALL CELL LUNG CANCER
     Dosage: AUC = 5.5 DAY 1 (AUC = 5.0 WITH PRIOR CHEST RADIOTHERAPY), DAY 1 EVERY 21 DAYS
     Route: 042
     Dates: start: 20121227, end: 20130226

REACTIONS (1)
  - Myositis [Recovered/Resolved with Sequelae]
